FAERS Safety Report 16217669 (Version 1)
Quarter: 2019Q2

REPORT INFORMATION
  Report Type: Spontaneous
  Country: US (occurrence: US)
  Receive Date: 20190315
  Receipt Date: 20190315
  Transmission Date: 20190711
  Serious: Yes (Hospitalization)
  Sender: FDA-Public Use
  Company Number: None

PATIENT
  Age: 20 Year
  Sex: Male

DRUGS (4)
  1. SYMDEKO [Suspect]
     Active Substance: IVACAFTOR\TEZACAFTOR
     Route: 048
  2. CROMOLYN SOD NEB 20MG/2ML [Suspect]
     Active Substance: CROMOLYN SODIUM
     Indication: CYSTIC FIBROSIS
     Dosage: ?          OTHER DOSE:NEB 1 VIAL;?
     Dates: start: 201803
  3. SYMDEKO [Suspect]
     Active Substance: IVACAFTOR\TEZACAFTOR
     Indication: CYSTIC FIBROSIS
     Dosage: ?          OTHER DOSE:100/150MG;?
     Route: 048
     Dates: start: 201808
  4. PULMOZYME [Suspect]
     Active Substance: DORNASE ALFA
     Indication: CYSTIC FIBROSIS
     Dosage: ?          OTHER DOSE:NEB 1 VIAL;?
     Route: 055
     Dates: start: 201612

REACTIONS (1)
  - Infection [None]

NARRATIVE: CASE EVENT DATE: 201901
